FAERS Safety Report 11506107 (Version 1)
Quarter: 2015Q3

REPORT INFORMATION
  Report Type: Spontaneous
  Country: US (occurrence: None)
  Receive Date: 20150914
  Receipt Date: 20150914
  Transmission Date: 20151125
  Serious: Yes (Life-Threatening)
  Sender: FDA-Public Use
  Company Number: None

PATIENT
  Age: 26 Year
  Sex: Male
  Weight: 88.45 kg

DRUGS (1)
  1. VIVITROL [Suspect]
     Active Substance: NALTREXONE
     Indication: DRUG DEPENDENCE
     Dosage: ONCE DOSE ?ONE INJECTION
     Route: 030

REACTIONS (6)
  - Mood altered [None]
  - Suicidal ideation [None]
  - Depression [None]
  - Delusion [None]
  - Depressed mood [None]
  - Mania [None]

NARRATIVE: CASE EVENT DATE: 20150720
